FAERS Safety Report 8766564 (Version 3)
Quarter: 2012Q4

REPORT INFORMATION
  Report Type: 
  Country: DE (occurrence: DE)
  Receive Date: 20120904
  Receipt Date: 20120928
  Transmission Date: 20130627
  Serious: Yes (Hospitalization, Other)
  Sender: FDA-Public Use
  Company Number: DE-RANBAXY-2012RR-59683

PATIENT
  Age: 51 Year
  Sex: Female

DRUGS (5)
  1. TAVOR EXPIDET [Suspect]
     Indication: SCHIZOPHRENIA, CATATONIC TYPE
     Dosage: 1-0-1 mg
     Route: 065
     Dates: start: 20101128
  2. ZYPREXA VELOTAB [Suspect]
     Indication: SCHIZOPHRENIA, CATATONIC TYPE
     Dosage: 20 mg/day (0-0-20 mg)
     Route: 065
     Dates: start: 20101125
  3. ZYPREXA VELOTAB [Suspect]
     Indication: SCHIZOPHRENIA, CATATONIC TYPE
     Dosage: 30 mg/day
     Route: 065
     Dates: start: 20101201
  4. LORAZEPAM [Suspect]
     Indication: SCHIZOPHRENIA, CATATONIC TYPE
     Dosage: up to 5 mg/day
     Route: 065
  5. L-THYROXINE [Concomitant]
     Indication: PRODUCT USED FOR UNKNOWN INDICATION
     Dosage: 25 ug/day
     Route: 065

REACTIONS (2)
  - Hypothermia [Unknown]
  - Condition aggravated [Unknown]
